FAERS Safety Report 8756925 (Version 1)
Quarter: 2012Q4

REPORT INFORMATION
  Report Type: 
  Country: FR (occurrence: FR)
  Receive Date: 20120828
  Receipt Date: 20120828
  Transmission Date: 20130627
  Serious: Yes (Life-Threatening)
  Sender: FDA-Public Use
  Company Number: FR-BRISTOL-MYERS SQUIBB COMPANY-16864951

PATIENT
  Age: 66 Year
  Sex: Female

DRUGS (12)
  1. HYDREA [Suspect]
     Indication: DEEP VEIN THROMBOSIS
     Dosage: Also taken 2/day (the following day)
     Route: 048
     Dates: end: 201205
  2. METOJECT [Suspect]
     Indication: RHEUMATOID ARTHRITIS
     Dosage: 1DF: 10 mg/ml solution Formulation: injection in prefilled syringe
     Route: 058
  3. CORTANCYL [Suspect]
     Indication: RHEUMATOID ARTHRITIS
     Dosage: Formulation: Tab
     Route: 048
  4. KARDEGIC [Concomitant]
  5. MICARDIS [Concomitant]
  6. AVLOCARDYL [Concomitant]
  7. ALDACTAZINE [Concomitant]
     Dosage: Formulation: film-coated and scored tablet
  8. LAROXYL [Concomitant]
  9. INEXIUM [Concomitant]
  10. TAHOR [Concomitant]
  11. LAMISIL [Concomitant]
  12. ACTONEL [Concomitant]

REACTIONS (3)
  - Pneumonia legionella [Recovered/Resolved]
  - Septic shock [Recovered/Resolved]
  - Renal failure acute [None]
